FAERS Safety Report 10029629 (Version 1)
Quarter: 2014Q1

REPORT INFORMATION
  Report Type: Spontaneous
  Country: US (occurrence: None)
  Receive Date: 20140320
  Receipt Date: 20140320
  Transmission Date: 20141002
  Serious: Yes (Other)
  Sender: FDA-Public Use
  Company Number: None

PATIENT
  Age: 73 Year
  Sex: Male

DRUGS (1)
  1. GLYBURIDE-METFORMIN 2.5MG-500MG HERITAGE PHARMACEUTICALS, INC [Suspect]
     Indication: DIABETES MELLITUS
     Dosage: 2 TABLETS BID ORAL
     Route: 048
     Dates: start: 20121119, end: 20130219

REACTIONS (2)
  - Product quality issue [None]
  - Laboratory test abnormal [None]
